FAERS Safety Report 17237370 (Version 6)
Quarter: 2022Q4

REPORT INFORMATION
  Report Type: Spontaneous
  Country: US (occurrence: US)
  Receive Date: 20200106
  Receipt Date: 20221209
  Transmission Date: 20230112
  Serious: No
  Sender: FDA-Public Use
  Company Number: US-PFIZER INC-2020003358

PATIENT
  Age: 41 Year
  Sex: Female

DRUGS (1)
  1. XELJANZ XR [Suspect]
     Active Substance: TOFACITINIB CITRATE
     Indication: Rheumatoid arthritis
     Dosage: 11 MG, DAILY
     Route: 048
     Dates: start: 201912

REACTIONS (6)
  - Urinary tract infection [Unknown]
  - Blood cholesterol increased [Unknown]
  - COVID-19 [Unknown]
  - Diarrhoea [Unknown]
  - Influenza [Unknown]
  - Inappropriate schedule of product administration [Unknown]
